FAERS Safety Report 8502107-6 (Version None)
Quarter: 2012Q3

REPORT INFORMATION
  Report Type: 
  Country: None (occurrence: None)
  Receive Date: 20120711
  Receipt Date: 20120625
  Transmission Date: 20120928
  Serious: No
  Sender: FDA-Public Use
  Company Number: CA-JNJFOC-20120612532

PATIENT
  Sex: Female
  Weight: 59.5 kg

DRUGS (2)
  1. IMURAN [Concomitant]
     Dosage: 3.5 (UNITS UNSPECIFIED)
     Route: 048
  2. REMICADE [Suspect]
     Indication: CROHN'S DISEASE
     Route: 042

REACTIONS (1)
  - FOOD POISONING [None]
